FAERS Safety Report 7995027-7 (Version None)
Quarter: 2011Q4

REPORT INFORMATION
  Report Type: 
  Country: None (occurrence: None)
  Receive Date: 20111217
  Receipt Date: 20111217
  Transmission Date: 20120403
  Serious: Yes (Life-Threatening, Hospitalization)
  Sender: FDA-Public Use
  Company Number: None

PATIENT
  Age: 20 Year
  Sex: Female
  Weight: 75.5 kg

DRUGS (1)
  1. ORTHO EVRA [Suspect]
     Dosage: ONE Q WEEK TOP
     Route: 061
     Dates: start: 20111031, end: 20111124

REACTIONS (1)
  - PULMONARY EMBOLISM [None]
